FAERS Safety Report 7592024-0 (Version None)
Quarter: 2011Q2

REPORT INFORMATION
  Report Type: 
  Country: None (occurrence: None)
  Receive Date: 20110606
  Receipt Date: 20110130
  Transmission Date: 20111010
  Serious: Yes (Life-Threatening, Other)
  Sender: FDA-Public Use
  Company Number: US-SEPTODONT-201100020

PATIENT
  Age: 32 Year
  Sex: Female
  Weight: 61.2 kg

DRUGS (1)
  1. SEPTOCAINE [Suspect]
     Indication: LOCAL ANAESTHESIA
     Dosage: DENTAL
     Route: 004
     Dates: start: 20100601

REACTIONS (1)
  - ANAPHYLACTIC REACTION [None]
